FAERS Safety Report 10680626 (Version 1)
Quarter: 2014Q4

REPORT INFORMATION
  Report Type: Spontaneous
  Country: US (occurrence: US)
  Receive Date: 20141229
  Receipt Date: 20141229
  Transmission Date: 20150529
  Serious: Yes (Hospitalization)
  Sender: FDA-Public Use
  Company Number: US-SA-2014SA113008

PATIENT
  Sex: Male

DRUGS (11)
  1. PLAVIX [Suspect]
     Active Substance: CLOPIDOGREL BISULFATE
     Indication: PRODUCT USED FOR UNKNOWN INDICATION
     Route: 065
  2. ASPIRIN. [Suspect]
     Active Substance: ASPIRIN
     Indication: PRODUCT USED FOR UNKNOWN INDICATION
     Route: 065
  3. SIMVASTATIN. [Concomitant]
     Active Substance: SIMVASTATIN
  4. CARVEDILOL. [Concomitant]
     Active Substance: CARVEDILOL
  5. AMIODARONE [Concomitant]
     Active Substance: AMIODARONE
  6. TAMSULOSIN [Concomitant]
     Active Substance: TAMSULOSIN
  7. OMEPRAZOLE. [Concomitant]
     Active Substance: OMEPRAZOLE
  8. BRILINTA [Concomitant]
     Active Substance: TICAGRELOR
  9. COUMADIN [Concomitant]
     Active Substance: WARFARIN SODIUM
  10. GEMFIBROZIL. [Concomitant]
     Active Substance: GEMFIBROZIL
  11. LISINOPRIL. [Concomitant]
     Active Substance: LISINOPRIL

REACTIONS (4)
  - Asthenia [Recovered/Resolved]
  - Melaena [Recovered/Resolved]
  - Infection [Recovered/Resolved]
  - Upper gastrointestinal haemorrhage [Recovered/Resolved]
